FAERS Safety Report 12596309 (Version 1)
Quarter: 2016Q3

REPORT INFORMATION
  Report Type: Report from Study
  Country: US (occurrence: US)
  Receive Date: 20160726
  Receipt Date: 20160726
  Transmission Date: 20161109
  Serious: No
  Sender: FDA-Public Use
  Company Number: US-AMGEN-USASL2016068695

PATIENT
  Age: 80 Year
  Sex: Male

DRUGS (6)
  1. KYPROLIS [Suspect]
     Active Substance: CARFILZOMIB
     Dosage: 45 MG, D5W 2 TIMES/WK
     Route: 065
     Dates: end: 201605
  2. KYPROLIS [Suspect]
     Active Substance: CARFILZOMIB
     Indication: PRODUCT USED FOR UNKNOWN INDICATION
     Dosage: UNK
     Route: 065
  3. DEXAMETHASONE. [Concomitant]
     Active Substance: DEXAMETHASONE
     Dosage: 20 MG
  4. REVLIMID [Concomitant]
     Active Substance: LENALIDOMIDE
     Dosage: 21 DAYS AND THEN ONE WEEK OFF
  5. DEXAMETHASONE. [Concomitant]
     Active Substance: DEXAMETHASONE
     Dosage: UNK
  6. REVLIMID [Concomitant]
     Active Substance: LENALIDOMIDE
     Dosage: UNK

REACTIONS (9)
  - Neuropathy peripheral [Unknown]
  - Nerve injury [Unknown]
  - Gait disturbance [Unknown]
  - Hypoaesthesia [Unknown]
  - Therapeutic response unexpected [Unknown]
  - Hypersensitivity [Unknown]
  - Cough [Unknown]
  - Bone disorder [Unknown]
  - Pain [Unknown]
